FAERS Safety Report 7358227-5 (Version None)
Quarter: 2011Q1

REPORT INFORMATION
  Report Type: 
  Country: None (occurrence: None)
  Receive Date: 20110317
  Receipt Date: 20110311
  Transmission Date: 20110831
  Serious: Yes (Hospitalization)
  Sender: FDA-Public Use
  Company Number: JP-ROCHE-762223

PATIENT
  Sex: Male
  Weight: 14 kg

DRUGS (7)
  1. ASVERIN [Concomitant]
     Dosage: DRUG: ASVERIN (TIPEPIDINE HIBENZATE), FORM: POWDERED MEDICINE
     Route: 048
     Dates: start: 20110224, end: 20110228
  2. ALPINY [Concomitant]
     Dosage: FORM: SUPPOSITORIAE RECTALE, DRUG: ALPINY(ACETAMINOPHEN)
     Route: 054
     Dates: start: 20110224, end: 20110225
  3. CLARITHROMYCIN [Concomitant]
     Dosage: DRUG: LIKMOSS (CLARITHROMYCIN)
     Route: 048
     Dates: start: 20110224, end: 20110228
  4. MUCODYNE [Concomitant]
     Route: 048
     Dates: start: 20110224, end: 20110228
  5. HOKUNALIN [Concomitant]
     Dosage: FORM: TAPE, DRUG: HOKUNALIN: TAPE(TULOBUTEROL)
     Route: 062
     Dates: start: 20110224, end: 20110228
  6. KAKKON-TO [Concomitant]
     Dosage: DRUG: KAKKON-TP(KAKKON-TO), FORM: GRANULATED POWDER
     Route: 048
     Dates: start: 20110224, end: 20110225
  7. TAMIFLU [Suspect]
     Indication: INFLUENZA
     Route: 048
     Dates: start: 20110224, end: 20110224

REACTIONS (2)
  - ABNORMAL BEHAVIOUR [None]
  - FEBRILE CONVULSION [None]
